FAERS Safety Report 4580648-4 (Version None)
Quarter: 2005Q1

REPORT INFORMATION
  Report Type: 
  Country: None (occurrence: None)
  Receive Date: 20050214
  Receipt Date: 20040504
  Transmission Date: 20050727
  Serious: No
  Sender: FDA-Public Use
  Company Number: US-GLAXOSMITHKLINE-A0509472A

PATIENT
  Age: 31 Year
  Sex: Male

DRUGS (6)
  1. LAMICTAL [Suspect]
     Dosage: 25MG PER DAY
     Route: 048
     Dates: start: 20040504
  2. CLONAZEPAM [Concomitant]
  3. NAPROXEN [Concomitant]
  4. RISPERDAL [Concomitant]
  5. PREVACID [Concomitant]
  6. Q-MIBID DM [Concomitant]

REACTIONS (2)
  - PRURITUS [None]
  - RASH [None]
